FAERS Safety Report 4596749-0 (Version None)
Quarter: 2005Q1

REPORT INFORMATION
  Report Type: 
  Country: None (occurrence: None)
  Receive Date: 20050228
  Receipt Date: 20050110
  Transmission Date: 20050727
  Serious: No
  Sender: FDA-Public Use
  Company Number: S04-FRA-08305-01

PATIENT
  Age: 94 Year
  Sex: Male

DRUGS (4)
  1. MEMANTINE HCL [Suspect]
     Dosage: 10 MG BID PO
     Route: 048
     Dates: start: 20041118
  2. MEMANTINE HCL [Suspect]
     Dosage: 10 MG QD PO
     Route: 048
     Dates: start: 20041018, end: 20041117
  3. ARICEPT [Suspect]
     Dosage: 10 MG QD PO
     Route: 048
     Dates: start: 20040201
  4. SALICYLATES [Concomitant]

REACTIONS (6)
  - BRADYCARDIA [None]
  - BUNDLE BRANCH BLOCK RIGHT [None]
  - HYPOTENSION [None]
  - MALAISE [None]
  - PALLOR [None]
  - SYNCOPE [None]
